FAERS Safety Report 4786195-9 (Version None)
Quarter: 2005Q3

REPORT INFORMATION
  Report Type: 
  Country: None (occurrence: None)
  Receive Date: 20050930
  Receipt Date: 20050916
  Transmission Date: 20060218
  Serious: Yes (Disabling, Other)
  Sender: FDA-Public Use
  Company Number: A026614

PATIENT
  Sex: Male
  Weight: 79.3795 kg

DRUGS (9)
  1. VIAGRA [Suspect]
     Indication: ERECTILE DYSFUNCTION
     Dosage: 50 MG (PRN), ORAL
     Route: 048
     Dates: start: 19990712, end: 20000717
  2. CARDURA [Suspect]
     Indication: BENIGN PROSTATIC HYPERPLASIA
     Dosage: ORAL
     Route: 048
     Dates: start: 19990101
  3. DIOVAN [Suspect]
     Indication: HYPERTENSION
     Dosage: ORAL
     Route: 048
     Dates: start: 20000101, end: 20001113
  4. DEPO-TESTOSTERONE [Concomitant]
  5. ECOTRIN (ACETYLSALICYLIC ACID) [Concomitant]
  6. ZESTRIL [Concomitant]
  7. LIPITOR [Concomitant]
  8. ZESTORETIC [Concomitant]
  9. FOLIC ACID [Concomitant]

REACTIONS (20)
  - BENIGN PROSTATIC HYPERPLASIA [None]
  - BLOOD BILIRUBIN INCREASED [None]
  - BLOOD LACTATE DEHYDROGENASE INCREASED [None]
  - BLOOD PRESSURE INCREASED [None]
  - CONJUNCTIVAL BLEB [None]
  - DISLOCATION OF JOINT PROSTHESIS [None]
  - DRUG EFFECT DECREASED [None]
  - ERYTHEMA [None]
  - HEPATOTOXICITY [None]
  - LACRIMATION INCREASED [None]
  - NOCTURIA [None]
  - OEDEMA PERIPHERAL [None]
  - PINGUECULA [None]
  - RETINAL DEGENERATION [None]
  - RETINAL DETACHMENT [None]
  - RETINAL TEAR [None]
  - VISION BLURRED [None]
  - VITREOUS FLOATERS [None]
  - VITREOUS HAEMORRHAGE [None]
  - WEIGHT INCREASED [None]
